FAERS Safety Report 6664462-1 (Version None)
Quarter: 2010Q2

REPORT INFORMATION
  Report Type: 
  Country: None (occurrence: None)
  Receive Date: 20100401
  Receipt Date: 20100326
  Transmission Date: 20101027
  Serious: Yes (Death, Life-Threatening, Hospitalization)
  Sender: FDA-Public Use
  Company Number: JP-ELI_LILLY_AND_COMPANY-JP201002003364

PATIENT
  Sex: Male
  Weight: 63 kg

DRUGS (9)
  1. ALIMTA [Suspect]
     Indication: LUNG ADENOCARCINOMA STAGE III
     Dosage: 860 MG, OTHER
     Route: 042
     Dates: start: 20100106, end: 20100127
  2. PANVITAN [Concomitant]
     Dosage: 2 G, DAILY (1/D)
     Route: 048
     Dates: start: 20091216, end: 20100209
  3. METHYCOBAL [Concomitant]
     Dosage: 500 UG, OTHER
     Route: 030
     Dates: start: 20091216
  4. METHYCOBAL [Concomitant]
     Dosage: 1 MG, OTHER
     Route: 030
     Dates: start: 20091224
  5. ALLOPURINOL [Concomitant]
     Indication: HYPERURICAEMIA
     Dosage: 200 MG, DAILY (1/D)
     Route: 048
     Dates: start: 20090710
  6. URALYT                             /01779901/ [Concomitant]
     Indication: HYPERURICAEMIA
     Dosage: 3 D/F, DAILY (1/D)
     Route: 048
     Dates: start: 20090730
  7. MAGLAX [Concomitant]
     Indication: CONSTIPATION
     Dosage: 990 MG, DAILY (1/D)
     Dates: start: 20090909
  8. CELCOX [Concomitant]
     Indication: PAIN
     Dosage: 400 MG, DAILY (1/D)
     Route: 048
     Dates: start: 20090909
  9. GASMOTIN [Concomitant]
     Indication: CONSTIPATION
     Dosage: 15 MG, DAILY (1/D)
     Route: 048
     Dates: start: 20091224

REACTIONS (6)
  - CONSTIPATION [None]
  - DECREASED APPETITE [None]
  - HAEMATOTOXICITY [None]
  - HAEMODIALYSIS [None]
  - INTERSTITIAL LUNG DISEASE [None]
  - PSEUDOMONAS INFECTION [None]
